FAERS Safety Report 4926709-9 (Version None)
Quarter: 2006Q1

REPORT INFORMATION
  Report Type: 
  Country: None (occurrence: None)
  Receive Date: 20060228
  Receipt Date: 20050531
  Transmission Date: 20060701
  Serious: No
  Sender: FDA-Public Use
  Company Number: US-GLAXOSMITHKLINE-A0560609A

PATIENT
  Age: 62 Year
  Sex: Male

DRUGS (4)
  1. LAMICTAL [Suspect]
     Indication: BIPOLAR DISORDER
     Dosage: 100MG PER DAY
     Route: 048
     Dates: start: 20050421, end: 20050606
  2. WELLBUTRIN SR [Concomitant]
     Indication: DEPRESSION
     Dosage: 200MG TWICE PER DAY
     Route: 048
  3. ZOLOFT [Concomitant]
     Indication: DEPRESSION
     Dosage: 200MG PER DAY
     Route: 048
  4. PROPRANOLOL [Concomitant]
     Indication: BENIGN NEOPLASM
     Dosage: 60MG PER DAY
     Route: 048

REACTIONS (4)
  - MOUTH ULCERATION [None]
  - ORAL CANDIDIASIS [None]
  - RASH PRURITIC [None]
  - SKIN LESION [None]
